FAERS Safety Report 5446700-6 (Version None)
Quarter: 2007Q3

REPORT INFORMATION
  Report Type: 
  Country: None (occurrence: None)
  Receive Date: 20070907
  Receipt Date: 20070827
  Transmission Date: 20080115
  Serious: Yes (Other)
  Sender: FDA-Public Use
  Company Number: US-PFIZER INC-2007071482

PATIENT
  Sex: Female
  Weight: 75 kg

DRUGS (5)
  1. LYRICA [Suspect]
     Indication: BACK PAIN
  2. LYRICA [Suspect]
     Indication: SCIATICA
  3. PROZAC [Concomitant]
  4. FISH OIL [Concomitant]
  5. GLUCOSAMINE [Concomitant]

REACTIONS (6)
  - AFFECT LABILITY [None]
  - CHEST DISCOMFORT [None]
  - DYSPNOEA [None]
  - FEELING ABNORMAL [None]
  - IRRITABILITY [None]
  - MOOD ALTERED [None]
